FAERS Safety Report 5050194-2 (Version None)
Quarter: 2006Q3

REPORT INFORMATION
  Report Type: 
  Country: None (occurrence: None)
  Receive Date: 20060713
  Receipt Date: 20060628
  Transmission Date: 20061208
  Serious: Yes (Other)
  Sender: FDA-Public Use
  Company Number: PHBS2006JP09843

PATIENT
  Age: 52 Year
  Sex: Female

DRUGS (2)
  1. CYCLOSPORINE [Suspect]
     Indication: POLYMYOSITIS
     Dosage: 150 MG/D
     Route: 065
  2. PREDNISOLONE [Suspect]
     Indication: POLYMYOSITIS
     Dosage: 50 MG/D
     Route: 065

REACTIONS (1)
  - PNEUMOMEDIASTINUM [None]
